FAERS Safety Report 9638190 (Version 1)
Quarter: 2013Q4

REPORT INFORMATION
  Report Type: Spontaneous
  Country: US (occurrence: US)
  Receive Date: 20131022
  Receipt Date: 20131022
  Transmission Date: 20140711
  Serious: No
  Sender: FDA-Public Use
  Company Number: US-PFIZER INC-2013299318

PATIENT
  Age: 59 Year
  Sex: Female
  Weight: 89.8 kg

DRUGS (4)
  1. LYRICA [Suspect]
     Indication: OSTEOARTHRITIS
     Dosage: 50 MG, 2X/DAY
     Route: 048
     Dates: start: 201309
  2. ALEVE [Concomitant]
     Dosage: UNK
  3. ZOLOFT [Concomitant]
     Indication: DEPRESSION
     Dosage: UNK
  4. METFORMIN [Concomitant]
     Indication: DIABETES MELLITUS
     Dosage: UNK

REACTIONS (4)
  - Off label use [Not Recovered/Not Resolved]
  - Drug ineffective for unapproved indication [Unknown]
  - Nasopharyngitis [Not Recovered/Not Resolved]
  - Cough [Not Recovered/Not Resolved]
